FAERS Safety Report 14690011 (Version 2)
Quarter: 2018Q1

REPORT INFORMATION
  Report Type: Spontaneous
  Country: CA (occurrence: CA)
  Receive Date: 20180328
  Receipt Date: 20180328
  Transmission Date: 20180509
  Serious: Yes (Other)
  Sender: FDA-Public Use
  Company Number: CA-SA-2018SA080003

PATIENT
  Age: 3 Year
  Sex: Male
  Weight: 13 kg

DRUGS (7)
  1. LABETALOL [Suspect]
     Active Substance: LABETALOL\LABETALOL HYDROCHLORIDE
     Route: 065
  2. ETOPOSIDE. [Suspect]
     Active Substance: ETOPOSIDE
     Indication: NEUROBLASTOMA
     Route: 042
  3. DOMPERIDONE [Concomitant]
     Active Substance: DOMPERIDONE
     Route: 065
  4. MONTELUKAST [Suspect]
     Active Substance: MONTELUKAST SODIUM
     Route: 065
  5. CISPLATIN. [Concomitant]
     Active Substance: CISPLATIN
     Route: 065
  6. RANITIDINE. [Suspect]
     Active Substance: RANITIDINE
     Route: 065
  7. DEXAMETHASONE. [Suspect]
     Active Substance: DEXAMETHASONE
     Route: 065

REACTIONS (3)
  - Vomiting [Recovered/Resolved]
  - Agitation [Recovered/Resolved]
  - Erythema [Recovered/Resolved]
